FAERS Safety Report 16653413 (Version 1)
Quarter: 2019Q3

REPORT INFORMATION
  Report Type: Spontaneous
  Country: FR (occurrence: FR)
  Receive Date: 20190731
  Receipt Date: 20190731
  Transmission Date: 20191004
  Serious: Yes (Death, Hospitalization)
  Sender: FDA-Public Use
  Company Number: FR-TEVA-2019-FR-1085489

PATIENT
  Age: 79 Year
  Sex: Male

DRUGS (6)
  1. FUROSEMIDE. [Concomitant]
     Active Substance: FUROSEMIDE
  2. BISOPROLOL (FUMARATE ACIDE DE) [Concomitant]
     Active Substance: BISOPROLOL FUMARATE
  3. LEVOTHYROX 100 MICROGRAMMES, COMPRIME SECABLE [Concomitant]
     Active Substance: LEVOTHYROXINE
  4. PREVISCAN [FLUINDIONE] [Suspect]
     Active Substance: FLUINDIONE
     Indication: ATRIAL FIBRILLATION
     Route: 048
     Dates: end: 20190123
  5. AMIODARONE (CHLORHYDRATE D) [Suspect]
     Active Substance: AMIODARONE HYDROCHLORIDE
     Route: 048
  6. DALACINE [CLINDAMYCIN PHOSPHATE] [Interacting]
     Active Substance: CLINDAMYCIN PHOSPHATE
     Indication: STAPHYLOCOCCAL INFECTION
     Route: 048
     Dates: start: 201901, end: 20190123

REACTIONS (2)
  - Subarachnoid haemorrhage [Fatal]
  - Drug interaction [Unknown]

NARRATIVE: CASE EVENT DATE: 20190123
